FAERS Safety Report 10240048 (Version 1)
Quarter: 2014Q2

REPORT INFORMATION
  Report Type: Spontaneous
  Country: US (occurrence: US)
  Receive Date: 20140617
  Receipt Date: 20140617
  Transmission Date: 20141212
  Serious: No
  Sender: FDA-Public Use
  Company Number: 2014SP002841

PATIENT
  Sex: Female

DRUGS (2)
  1. DOXYCYCLINE [Suspect]
     Indication: CELLULITIS
  2. GABAPENTIN [Suspect]
     Indication: PRODUCT USED FOR UNKNOWN INDICATION

REACTIONS (1)
  - Erythema [Unknown]
